FAERS Safety Report 6902396-5 (Version None)
Quarter: 2010Q3

REPORT INFORMATION
  Report Type: 
  Country: None (occurrence: None)
  Receive Date: 20100803
  Receipt Date: 20080520
  Transmission Date: 20110219
  Serious: Yes (Other)
  Sender: FDA-Public Use
  Company Number: US-PFIZER INC-2008017317

PATIENT
  Sex: Female
  Weight: 70.454 kg

DRUGS (6)
  1. LYRICA [Suspect]
     Indication: FIBROMYALGIA
     Route: 048
     Dates: start: 20080201, end: 20080212
  2. LAMICTAL [Concomitant]
  3. KLONOPIN [Concomitant]
  4. EFFEXOR [Concomitant]
  5. AMBIEN [Concomitant]
  6. LORAZEPAM [Concomitant]

REACTIONS (6)
  - DRUG INEFFECTIVE [None]
  - HYPERAESTHESIA [None]
  - INTENTIONAL DRUG MISUSE [None]
  - PAIN [None]
  - PARAESTHESIA [None]
  - SOMNOLENCE [None]
